FAERS Safety Report 6088100-4 (Version None)
Quarter: 2009Q1

REPORT INFORMATION
  Report Type: 
  Country: None (occurrence: None)
  Receive Date: 20090218
  Receipt Date: 20090205
  Transmission Date: 20090719
  Serious: Yes (Life-Threatening, Hospitalization)
  Sender: FDA-Public Use
  Company Number: 8042843

PATIENT
  Age: 21 Year
  Sex: Female

DRUGS (8)
  1. XYZAL [Suspect]
     Dosage: 10 MG 1/D PO
     Route: 048
     Dates: start: 20081202, end: 20081206
  2. PYOSTACINE [Suspect]
     Dosage: 1 G 2/D PO
     Route: 048
     Dates: start: 20081202, end: 20081206
  3. ORBENINE [Suspect]
     Dosage: 1 G 2/D PO
     Route: 048
     Dates: start: 20081206, end: 20081212
  4. FUCIDINE /00065701/ [Suspect]
     Dosage: CUT
     Route: 003
     Dates: start: 20081202, end: 20081206
  5. MUPIDERM [Suspect]
     Dosage: CUT
     Route: 003
     Dates: start: 20081206, end: 20081210
  6. DIASEPTYL [Suspect]
     Dosage: CUT
     Route: 003
     Dates: start: 20081202, end: 20081206
  7. EFFICORT /00028609/ [Suspect]
     Dosage: CUT
     Route: 003
     Dates: start: 20081206, end: 20081212
  8. AUREOMYCINE [Concomitant]

REACTIONS (6)
  - DIARRHOEA [None]
  - LUNG DISORDER [None]
  - NO THERAPEUTIC RESPONSE [None]
  - PURPURA [None]
  - STREPTOCOCCAL IDENTIFICATION TEST POSITIVE [None]
  - TOXIC EPIDERMAL NECROLYSIS [None]
